FAERS Safety Report 20116233 (Version 5)
Quarter: 2023Q2

REPORT INFORMATION
  Report Type: Spontaneous
  Country: GB (occurrence: GB)
  Receive Date: 20211126
  Receipt Date: 20230425
  Transmission Date: 20230721
  Serious: Yes (Other)
  Sender: FDA-Public Use
  Company Number: GB-ROCHE-2922383

PATIENT
  Age: 69 Year
  Sex: Female
  Weight: 79.1 kg

DRUGS (15)
  1. BEVACIZUMAB [Suspect]
     Active Substance: BEVACIZUMAB
     Indication: Hepatocellular carcinoma
     Dosage: 1100 MILLIGRAM
     Route: 042
     Dates: start: 20210420
  2. BEVACIZUMAB [Suspect]
     Active Substance: BEVACIZUMAB
     Dosage: 1100 MILLIGRAM
     Route: 042
     Dates: start: 20210511
  3. ATEZOLIZUMAB [Suspect]
     Active Substance: ATEZOLIZUMAB
     Indication: Hepatocellular carcinoma
     Dosage: 1200 MILLIGRAM
     Route: 042
     Dates: start: 20210420
  4. ATEZOLIZUMAB [Suspect]
     Active Substance: ATEZOLIZUMAB
     Dosage: 1200 MILLIGRAM
     Route: 042
     Dates: start: 20210511
  5. DOCUSATE [Concomitant]
     Active Substance: DOCUSATE
     Dosage: UNK, BID
     Route: 065
     Dates: start: 20210528
  6. EMPAGLIFLOZIN [Concomitant]
     Active Substance: EMPAGLIFLOZIN
     Dosage: UNK, QD
     Route: 065
  7. GLICLAZIDE [Concomitant]
     Active Substance: GLICLAZIDE
     Dosage: UNK UNK, QD
     Route: 065
  8. ACETAMINOPHEN [Concomitant]
     Active Substance: ACETAMINOPHEN
     Dosage: UNK UNK, AS NECESSARY
     Route: 065
     Dates: start: 20210618
  9. RAMIPRIL [Concomitant]
     Active Substance: RAMIPRIL
     Dosage: UNK, QD
     Route: 065
  10. SENNA [Concomitant]
     Active Substance: SENNA LEAF\SENNOSIDES\SENNOSIDES A AND B
     Dosage: UNK, AS NECESSARY
     Route: 065
     Dates: start: 20210507
  11. DOXYCYCLINE [Concomitant]
     Active Substance: DOXYCYCLINE
     Dosage: UNK UNK, QD
     Route: 065
     Dates: start: 20220211
  12. CLINDAMYCIN [Concomitant]
     Active Substance: CLINDAMYCIN
     Dosage: UNK UNK, QD
     Dates: start: 20211210
  13. IBUPROFEN [Concomitant]
     Active Substance: IBUPROFEN
     Dosage: UNK
     Route: 065
     Dates: start: 20211012
  14. LEVOTHYROXINE [Concomitant]
     Active Substance: LEVOTHYROXINE
     Dosage: UNK UNK, QD
     Route: 065
     Dates: start: 20211119
  15. SORAFENIB [Concomitant]
     Active Substance: SORAFENIB
     Dosage: UNK
     Dates: start: 20230317

REACTIONS (5)
  - Hyperthyroidism [Recovered/Resolved]
  - Hypothyroidism [Not Recovered/Not Resolved]
  - Glycosuria [Not Recovered/Not Resolved]
  - Haematuria [Not Recovered/Not Resolved]
  - Diarrhoea [Recovered/Resolved]

NARRATIVE: CASE EVENT DATE: 20210716
